FAERS Safety Report 9535193 (Version 1)
Quarter: 2013Q3

REPORT INFORMATION
  Report Type: Report from Study
  Country: FR (occurrence: FR)
  Receive Date: 20130918
  Receipt Date: 20130918
  Transmission Date: 20140515
  Serious: Yes (Death, Congenital Anomaly, Other)
  Sender: FDA-Public Use
  Company Number: FR-009507513-1309FRA007525

PATIENT
  Sex: 0

DRUGS (1)
  1. LOSARTAN POTASSIUM [Suspect]
     Indication: HYPERTENSION
     Route: 064

REACTIONS (2)
  - Renal failure [Fatal]
  - Foetal exposure during pregnancy [Recovered/Resolved]
